FAERS Safety Report 10209180 (Version 2)
Quarter: 2014Q2

REPORT INFORMATION
  Report Type: Spontaneous
  Country: US (occurrence: US)
  Receive Date: 20140530
  Receipt Date: 20140604
  Transmission Date: 20141212
  Serious: No
  Sender: FDA-Public Use
  Company Number: US-ABBVIE-14P-163-1240316-00

PATIENT
  Age: 57 Year
  Sex: Female
  Weight: 57.2 kg

DRUGS (6)
  1. HUMIRA [Suspect]
     Indication: CROHN^S DISEASE
     Dates: start: 20140318, end: 20140318
  2. HUMIRA [Suspect]
     Dates: start: 20140401, end: 20140401
  3. HUMIRA [Suspect]
     Dates: start: 20140415
  4. PENTASA [Concomitant]
     Indication: CROHN^S DISEASE
  5. ALEVE [Concomitant]
     Indication: HEADACHE
  6. ALEVE [Concomitant]
     Indication: BACK PAIN

REACTIONS (2)
  - Ocular hyperaemia [Not Recovered/Not Resolved]
  - Miosis [Not Recovered/Not Resolved]
